FAERS Safety Report 5741905-9 (Version None)
Quarter: 2008Q2

REPORT INFORMATION
  Report Type: 
  Country: None (occurrence: None)
  Receive Date: 20080515
  Receipt Date: 20080429
  Transmission Date: 20081010
  Serious: Yes (Hospitalization)
  Sender: FDA-Public Use
  Company Number: 002#2#2008-00356

PATIENT
  Age: 78 Year
  Sex: Male
  Weight: 78.9259 kg

DRUGS (1)
  1. NEUPRO [Suspect]
     Indication: RESTLESS LEGS SYNDROME
     Dosage: 6MG/24H, 1 IN 1 D, TRANSDERMAL
     Route: 062
     Dates: start: 20080301

REACTIONS (3)
  - CONCUSSION [None]
  - DRUG DOSE OMISSION [None]
  - TREMOR [None]
